FAERS Safety Report 7833126-0 (Version None)
Quarter: 2011Q4

REPORT INFORMATION
  Report Type: 
  Country: None (occurrence: None)
  Receive Date: 20111024
  Receipt Date: 20111013
  Transmission Date: 20120403
  Serious: Yes (Hospitalization, Other)
  Sender: FDA-Public Use
  Company Number: BH-JNJFOC-20111007891

PATIENT
  Sex: Male
  Weight: 65 kg

DRUGS (7)
  1. TOPAMAX [Suspect]
     Indication: EPILEPSY
     Route: 065
     Dates: end: 20111006
  2. TOPAMAX [Suspect]
     Route: 065
  3. OMEPRAZOLE [Concomitant]
     Indication: DYSPEPSIA
     Route: 065
     Dates: start: 20111003
  4. ATORVASTATIN [Concomitant]
     Indication: LIPIDS INCREASED
     Route: 065
  5. LISINOPRIL [Concomitant]
     Indication: HYPERTENSION
     Route: 065
  6. TOPAMAX [Suspect]
     Route: 065
     Dates: start: 20110906
  7. NOVOMIX [Concomitant]
     Indication: DIABETES MELLITUS
     Dosage: 26 UNITS AND 20 UNITS
     Route: 065

REACTIONS (4)
  - CATATONIA [None]
  - AGGRESSION [None]
  - DIABETIC KETOACIDOSIS [None]
  - DISTURBANCE IN ATTENTION [None]
